FAERS Safety Report 16498091 (Version 1)
Quarter: 2019Q2

REPORT INFORMATION
  Report Type: Report from Study
  Country: JP (occurrence: JP)
  Receive Date: 20190628
  Receipt Date: 20190628
  Transmission Date: 20190711
  Serious: Yes (Other)
  Sender: FDA-Public Use
  Company Number: JP-EISAI MEDICAL RESEARCH-EC-2019-058357

PATIENT
  Age: 61 Year
  Sex: Male
  Weight: 71 kg

DRUGS (5)
  1. TSUMURA JUZENTAIHOTO EXTRACT GRANULES FOR ETHICAL USE [Concomitant]
  2. ERIBULIN [Suspect]
     Active Substance: ERIBULIN
     Indication: GASTRIC CANCER
     Route: 041
     Dates: start: 20190614
  3. LOXOPROFEN [Concomitant]
     Active Substance: LOXOPROFEN
  4. TEPRENONE [Concomitant]
     Active Substance: TEPRENONE
  5. METHYLCOBAL [Concomitant]
     Active Substance: METHYLCOBALAMIN

REACTIONS (1)
  - Neutropenia [Recovered/Resolved]

NARRATIVE: CASE EVENT DATE: 20190621
